FAERS Safety Report 19737851 (Version 1)
Quarter: 2021Q3

REPORT INFORMATION
  Report Type: Spontaneous
  Country: US (occurrence: US)
  Receive Date: 20210820
  Receipt Date: 20210820
  Transmission Date: 20211014
  Serious: Yes (Other)
  Sender: FDA-Public Use
  Company Number: None

PATIENT
  Age: 54 Year

DRUGS (1)
  1. LORBRENA [Suspect]
     Active Substance: LORLATINIB
     Indication: LUNG NEOPLASM MALIGNANT
     Route: 048
     Dates: start: 20210630

REACTIONS (6)
  - Peripheral swelling [None]
  - Insomnia [None]
  - Pain in extremity [None]
  - Gout [None]
  - Erythema [None]
  - Night sweats [None]

NARRATIVE: CASE EVENT DATE: 20210709
